FAERS Safety Report 22245467 (Version 4)
Quarter: 2023Q2

REPORT INFORMATION
  Report Type: Spontaneous
  Country: US (occurrence: US)
  Receive Date: 20230424
  Receipt Date: 20230628
  Transmission Date: 20230722
  Serious: No
  Sender: FDA-Public Use
  Company Number: US-MICRO LABS LIMITED-ML2023-02022

PATIENT
  Age: 78 Year
  Sex: Female

DRUGS (1)
  1. TRAVOPROST [Suspect]
     Active Substance: TRAVOPROST
     Indication: Glaucoma
     Dosage: ONE DROP IN EACH EYE, ONCE IN THE NIGHT
     Route: 047

REACTIONS (3)
  - Eye irritation [Unknown]
  - Product dose omission issue [Unknown]
  - Product packaging quantity issue [Unknown]
